FAERS Safety Report 12646010 (Version 1)
Quarter: 2016Q3

REPORT INFORMATION
  Report Type: Spontaneous
  Country: US (occurrence: US)
  Receive Date: 20160811
  Receipt Date: 20160811
  Transmission Date: 20161109
  Serious: Yes (Other)
  Sender: FDA-Public Use
  Company Number: US-ASTRAZENECA-2016SE85136

PATIENT
  Sex: Female

DRUGS (7)
  1. AFINITOR [Concomitant]
     Active Substance: EVEROLIMUS
  2. ANASTRAZOLE [Suspect]
     Active Substance: ANASTROZOLE
     Indication: BREAST CANCER METASTATIC
     Route: 048
  3. TAXOTERE [Concomitant]
     Active Substance: DOCETAXEL
  4. ATENELOL [Suspect]
     Active Substance: ATENOLOL
     Route: 065
  5. TAMOXIFEN [Suspect]
     Active Substance: TAMOXIFEN
     Route: 048
  6. FASLODEX [Concomitant]
     Active Substance: FULVESTRANT
     Route: 030
  7. IBRANCE [Concomitant]
     Active Substance: PALBOCICLIB
     Route: 048

REACTIONS (2)
  - Disease progression [Unknown]
  - Breast cancer [None]
